FAERS Safety Report 8073493-9 (Version None)
Quarter: 2012Q1

REPORT INFORMATION
  Report Type: 
  Country: None (occurrence: None)
  Receive Date: 20120126
  Receipt Date: 20120126
  Transmission Date: 20120608
  Serious: Yes (Hospitalization)
  Sender: FDA-Public Use
  Company Number: None

PATIENT
  Age: 82 Year
  Sex: Male
  Weight: 77.11 kg

DRUGS (2)
  1. XIFAXAN [Suspect]
     Indication: AMMONIA ABNORMAL
     Dosage: XIFAXAN 550MG.
     Route: 048
     Dates: start: 20110327, end: 20120110
  2. XIFAXAN [Suspect]
     Indication: CARDIAC CIRRHOSIS
     Dosage: XIFAXAN 550MG.
     Route: 048
     Dates: start: 20110327, end: 20120110

REACTIONS (1)
  - CLOSTRIDIAL INFECTION [None]
